FAERS Safety Report 15277584 (Version 5)
Quarter: 2018Q4

REPORT INFORMATION
  Report Type: Report from Study
  Country: DE (occurrence: DE)
  Receive Date: 20180814
  Receipt Date: 20181101
  Transmission Date: 20190204
  Serious: Yes (Hospitalization)
  Sender: FDA-Public Use
  Company Number: DE-EISAI MEDICAL RESEARCH-EC-2018-044062

PATIENT
  Age: 63 Year
  Sex: Female
  Weight: 70 kg

DRUGS (1)
  1. HALAVEN [Suspect]
     Active Substance: ERIBULIN MESYLATE
     Indication: BREAST CANCER METASTATIC
     Route: 048
     Dates: start: 20180801

REACTIONS (7)
  - Vomiting [Recovered/Resolved]
  - Cystitis [Recovering/Resolving]
  - White blood cell count decreased [Not Recovered/Not Resolved]
  - General physical health deterioration [Recovering/Resolving]
  - Pyrexia [Recovered/Resolved]
  - Pancytopenia [Recovering/Resolving]
  - Nausea [Recovered/Resolved]

NARRATIVE: CASE EVENT DATE: 20180807
